FAERS Safety Report 13908946 (Version 2)
Quarter: 2017Q3

REPORT INFORMATION
  Report Type: Spontaneous
  Country: US (occurrence: US)
  Receive Date: 20170828
  Receipt Date: 20170908
  Transmission Date: 20171127
  Serious: Yes (Other)
  Sender: FDA-Public Use
  Company Number: US-JNJCP-30000402451

PATIENT
  Sex: Female
  Weight: 77 kg

DRUGS (1)
  1. NEUTROGENA COOLDRY SPORT WITH MICROMESH FACE OIL FREE SUNSCREEN BROAD SPECTRUM SPF 70 [Suspect]
     Active Substance: AVOBENZONE\HOMOSALATE\OCTISALATE\OCTOCRYLENE\OXYBENZONE
     Indication: PROPHYLAXIS
     Dosage: APPLIED LIBERALLY ONE TIME
     Route: 061

REACTIONS (3)
  - Application site rash [Recovered/Resolved]
  - Application site urticaria [Recovered/Resolved]
  - Product lot number issue [Unknown]

NARRATIVE: CASE EVENT DATE: 201707
